FAERS Safety Report 9559747 (Version 3)
Quarter: 2014Q2

REPORT INFORMATION
  Report Type: Spontaneous
  Country: US (occurrence: None)
  Receive Date: 20130906
  Receipt Date: 20140416
  Transmission Date: 20141212
  Serious: Yes (Other)
  Sender: FDA-Public Use
  Company Number: 163-POMAL-13051582

PATIENT
  Age: 74 Year
  Sex: Female
  Weight: 38.6 kg

DRUGS (2)
  1. POMALYST [Suspect]
     Indication: PLASMA CELL MYELOMA
     Dosage: 2MG, 1 IN 1 D, PO
     Route: 048
     Dates: start: 20130321
  2. TRANSFUSION (BLOOD AND RELATED PRODUCTS) [Concomitant]

REACTIONS (11)
  - Arthralgia [None]
  - Constipation [None]
  - Chills [None]
  - Contusion [None]
  - Full blood count decreased [None]
  - Spinal pain [None]
  - Platelet count decreased [None]
  - Peripheral swelling [None]
  - Fatigue [None]
  - Eye disorder [None]
  - Malaise [None]
